FAERS Safety Report 6201327-3 (Version None)
Quarter: 2009Q2

REPORT INFORMATION
  Report Type: 
  Country: None (occurrence: None)
  Receive Date: 20090526
  Receipt Date: 20090515
  Transmission Date: 20091009
  Serious: Yes (Hospitalization, Other)
  Sender: FDA-Public Use
  Company Number: PHHY2009JP15884

PATIENT
  Age: 51 Year
  Sex: Female

DRUGS (5)
  1. ZOMETA [Suspect]
     Indication: METASTASES TO BONE
     Dosage: UNK
     Route: 041
     Dates: start: 20070201, end: 20070901
  2. ZOMETA [Suspect]
     Dosage: UNK
  3. BISPHONAL [Suspect]
     Indication: METASTASES TO BONE
     Dosage: UNK
     Route: 041
     Dates: start: 20010101
  4. BISPHONAL [Suspect]
     Indication: PAIN
  5. TAXOL [Concomitant]
     Dosage: 210 MG/M^2 3 TIMES/MONTH
     Dates: start: 20040101

REACTIONS (10)
  - BONE DISORDER [None]
  - EATING DISORDER [None]
  - GASTRIC ULCER [None]
  - GINGIVAL PAIN [None]
  - GINGIVAL SWELLING [None]
  - INFLAMMATORY PAIN [None]
  - ORAL SURGERY [None]
  - OSTEOMYELITIS [None]
  - SWELLING [None]
  - TOOTH EXTRACTION [None]
